FAERS Safety Report 16991860 (Version 3)
Quarter: 2020Q4

REPORT INFORMATION
  Report Type: Report from Study
  Country: None (occurrence: BR)
  Receive Date: 20191104
  Receipt Date: 20201001
  Transmission Date: 20210113
  Serious: Yes (Hospitalization, Other)
  Sender: FDA-Public Use
  Company Number: BR-ABBVIE-19K-020-2985766-00

PATIENT
  Age: 39 Year
  Sex: Female
  Weight: 93 kg

DRUGS (18)
  1. SERTRALINE [Concomitant]
     Active Substance: SERTRALINE HYDROCHLORIDE
     Indication: DEPRESSION
  2. HUMIRA [Suspect]
     Active Substance: ADALIMUMAB
     Route: 058
  3. LOSARTAN. [Suspect]
     Active Substance: LOSARTAN
     Indication: HYPERTENSION
     Route: 065
  4. CAPTOPRIL. [Concomitant]
     Active Substance: CAPTOPRIL
     Indication: HYPERTENSION
  5. GARDENAL [Concomitant]
     Active Substance: PHENOBARBITAL
     Indication: DEPRESSION
  6. HYDROCHLOROTHIAZIDE. [Concomitant]
     Active Substance: HYDROCHLOROTHIAZIDE
     Indication: HYPERTENSION
  7. RITALINA [Concomitant]
     Active Substance: METHYLPHENIDATE HYDROCHLORIDE
     Indication: DEPRESSION
  8. HUMIRA [Suspect]
     Active Substance: ADALIMUMAB
     Route: 058
     Dates: start: 2019, end: 201909
  9. HUMIRA [Suspect]
     Active Substance: ADALIMUMAB
     Indication: CROHN^S DISEASE
     Dosage: LOADING DOSE, WEEK 0
     Route: 058
     Dates: start: 20190806, end: 201908
  10. HUMIRA [Suspect]
     Active Substance: ADALIMUMAB
     Dosage: LOADING DOSE, WEEK 2
     Route: 058
     Dates: start: 2019, end: 2019
  11. AZATHIOPRINE. [Suspect]
     Active Substance: AZATHIOPRINE
     Indication: SEPSIS
     Route: 065
  12. FLUOXETINE [Concomitant]
     Active Substance: FLUOXETINE HYDROCHLORIDE
     Indication: DEPRESSION
  13. AZATHIOPRINE. [Concomitant]
     Active Substance: AZATHIOPRINE
     Indication: PRODUCT USED FOR UNKNOWN INDICATION
  14. AZATHIOPRINE. [Suspect]
     Active Substance: AZATHIOPRINE
     Route: 065
  15. ATENOLOL. [Concomitant]
     Active Substance: ATENOLOL
     Indication: HYPERTENSION
  16. DEPAKENE [Concomitant]
     Active Substance: VALPROIC ACID
     Indication: DEPRESSION
  17. RIVOTRIL [Concomitant]
     Active Substance: CLONAZEPAM
     Indication: DEPRESSION
  18. RIVOTRIL [Concomitant]
     Active Substance: CLONAZEPAM

REACTIONS (30)
  - Abdominal pain [Recovering/Resolving]
  - Loss of consciousness [Recovered/Resolved]
  - Anal incontinence [Unknown]
  - Sepsis [Recovered/Resolved]
  - Psychiatric symptom [Not Recovered/Not Resolved]
  - Skin discolouration [Recovering/Resolving]
  - Crohn^s disease [Not Recovered/Not Resolved]
  - Dysstasia [Not Recovered/Not Resolved]
  - Anaemia [Not Recovered/Not Resolved]
  - Dyspnoea [Unknown]
  - Pain in extremity [Unknown]
  - Muscle twitching [Recovering/Resolving]
  - Coagulopathy [Unknown]
  - Impaired quality of life [Not Recovered/Not Resolved]
  - Renal pain [Unknown]
  - Leukocytosis [Not Recovered/Not Resolved]
  - Sepsis [Recovering/Resolving]
  - Throat tightness [Unknown]
  - Secretion discharge [Not Recovered/Not Resolved]
  - Nausea [Not Recovered/Not Resolved]
  - Pyrexia [Recovering/Resolving]
  - Ovarian neoplasm [Recovered/Resolved]
  - Pallor [Not Recovered/Not Resolved]
  - Pain [Unknown]
  - Pyrexia [Recovered/Resolved]
  - Abdominal distension [Recovering/Resolving]
  - Uterine neoplasm [Recovered/Resolved]
  - Hypertension [Unknown]
  - Therapeutic product effect incomplete [Unknown]
  - Malaise [Unknown]

NARRATIVE: CASE EVENT DATE: 201910
